FAERS Safety Report 9432030 (Version 1)
Quarter: 2013Q3

REPORT INFORMATION
  Report Type: Spontaneous
  Country: NL (occurrence: NL)
  Receive Date: 20130731
  Receipt Date: 20130731
  Transmission Date: 20140515
  Serious: Yes (Other)
  Sender: FDA-Public Use
  Company Number: NL-JNJFOC-20130713831

PATIENT
  Age: 78 Year
  Sex: Female
  Weight: 62 kg

DRUGS (2)
  1. GALANTAMINE HBR [Suspect]
     Indication: DEMENTIA ALZHEIMER^S TYPE
     Route: 048
     Dates: start: 20110528, end: 20130716
  2. MEMANTINE [Interacting]
     Indication: DEMENTIA ALZHEIMER^S TYPE
     Dosage: 5 PLUS 10 PLUS 15 PLUS 20 MG
     Route: 048
     Dates: start: 20120429, end: 20130716

REACTIONS (2)
  - Epilepsy [Recovered/Resolved]
  - Drug interaction [Recovered/Resolved]
